FAERS Safety Report 6811829-4 (Version None)
Quarter: 2010Q3

REPORT INFORMATION
  Report Type: 
  Country: None (occurrence: None)
  Receive Date: 20100701
  Receipt Date: 20100323
  Transmission Date: 20110219
  Serious: No
  Sender: FDA-Public Use
  Company Number: US-BAYER-201017726NA

PATIENT

DRUGS (1)
  1. NEXAVAR [Suspect]
     Indication: THYROID CANCER
     Route: 048

REACTIONS (1)
  - DYSPHAGIA [None]
